FAERS Safety Report 11514291 (Version 2)
Quarter: 2015Q3

REPORT INFORMATION
  Report Type: Spontaneous
  Country: US (occurrence: US)
  Receive Date: 20150903
  Receipt Date: 20150903
  Transmission Date: 20151125
  Serious: No
  Sender: FDA-Public Use
  Company Number: US-ELI_LILLY_AND_COMPANY-US201003006427

PATIENT
  Sex: Male

DRUGS (5)
  1. HUMALOG [Suspect]
     Active Substance: INSULIN LISPRO
     Dosage: 20 U, OTHER
  2. HUMALOG [Suspect]
     Active Substance: INSULIN LISPRO
     Dosage: 12 U, UNKNOWN
  3. HUMALOG [Suspect]
     Active Substance: INSULIN LISPRO
     Dosage: 9 U, UNKNOWN
  4. HUMALOG [Suspect]
     Active Substance: INSULIN LISPRO
     Dosage: 9 U, UNKNOWN
  5. HUMALOG [Suspect]
     Active Substance: INSULIN LISPRO
     Dosage: 12 U, UNK

REACTIONS (5)
  - Vision blurred [Not Recovered/Not Resolved]
  - Weight decreased [Not Recovered/Not Resolved]
  - Emotional disorder [Not Recovered/Not Resolved]
  - Blood glucose increased [Not Recovered/Not Resolved]
  - Drug ineffective [Not Recovered/Not Resolved]
